FAERS Safety Report 10040041 (Version 2)
Quarter: 2014Q2

REPORT INFORMATION
  Report Type: Spontaneous
  Country: US (occurrence: US)
  Receive Date: 20140326
  Receipt Date: 20140630
  Transmission Date: 20141212
  Serious: No
  Sender: FDA-Public Use
  Company Number: US-009507513-1403USA005943

PATIENT
  Sex: Female

DRUGS (7)
  1. OXYTROL FOR WOMEN [Suspect]
     Indication: POLLAKIURIA
     Dosage: UNK, UNKNOWN
     Route: 062
  2. OXYTROL FOR WOMEN [Suspect]
     Dosage: UNK, UNKNOWN
     Route: 062
  3. UBIDECARENONE [Concomitant]
     Indication: STENT PLACEMENT
     Dosage: UNK, UNKNOWN
  4. PLAVIX [Concomitant]
     Indication: STENT PLACEMENT
     Dosage: 75 MG, UNKNOWN
  5. ASPIRIN [Concomitant]
     Indication: STENT PLACEMENT
     Dosage: 162 MG, UNKNOWN
  6. CHOLECALCIFEROL [Concomitant]
     Indication: PRODUCT USED FOR UNKNOWN INDICATION
     Dosage: 2000 IU, UNKNOWN
  7. VITAMINS (UNSPECIFIED) [Concomitant]
     Indication: PRODUCT USED FOR UNKNOWN INDICATION
     Dosage: UNK, UNKNOWN

REACTIONS (5)
  - Bladder stenosis [Recovered/Resolved]
  - Urine output decreased [Recovered/Resolved]
  - Erythema [Recovered/Resolved]
  - Drug effect decreased [Unknown]
  - Product quality issue [Unknown]
